FAERS Safety Report 15825885 (Version 1)
Quarter: 2018Q4

REPORT INFORMATION
  Report Type: Spontaneous
  Country: US (occurrence: US)
  Receive Date: 20181218
  Receipt Date: 20181218
  Transmission Date: 20190205
  Serious: No
  Sender: FDA-Public Use
  Company Number: None

PATIENT
  Age: 24 Year
  Sex: Male

DRUGS (1)
  1. MAVYRET [Suspect]
     Active Substance: GLECAPREVIR\PIBRENTASVIR
     Dates: start: 20181119, end: 20181217

REACTIONS (5)
  - Nausea [None]
  - Vomiting [None]
  - Abdominal discomfort [None]
  - Insurance issue [None]
  - Insomnia [None]

NARRATIVE: CASE EVENT DATE: 20181217
